FAERS Safety Report 9029905 (Version 1)
Quarter: 2013Q1

REPORT INFORMATION
  Report Type: Spontaneous
  Country: US (occurrence: US)
  Receive Date: 20130124
  Receipt Date: 20130124
  Transmission Date: 20140127
  Serious: Yes (Hospitalization, Other)
  Sender: FDA-Public Use
  Company Number: US-BAYER-2013-007451

PATIENT
  Age: 38 Year
  Sex: Female

DRUGS (17)
  1. YASMIN [Suspect]
     Indication: CONTRACEPTION
  2. CEFUROXIME AXETIL [Concomitant]
     Dosage: 500 MG, UNK
  3. AZITHROMYCIN [Concomitant]
     Dosage: 500 MG, UNK
  4. AZITHROMYCIN [Concomitant]
     Dosage: 250 MG, UNK
  5. FLUTICASONE [Concomitant]
     Dosage: 50 ?G, UNK
     Route: 045
  6. PROPOXYPHENE NAPSYLATE W/PARACETAMOL [Concomitant]
     Dosage: 100-650
  7. HYOSCYAMINE [Concomitant]
     Dosage: 0.125 MG, UNK
  8. FENTANYL [Concomitant]
  9. OXYGEN [Concomitant]
  10. VICODIN [Concomitant]
  11. AMBIEN [Concomitant]
  12. CELEBREX [Concomitant]
  13. PERCOCET [Concomitant]
  14. OCEAN [Concomitant]
     Route: 045
  15. OPIUM ALKALOIDS AND DERIVATIVES [Concomitant]
  16. CEFTIN [Concomitant]
  17. ZITHROMAX [Concomitant]

REACTIONS (2)
  - Pulmonary embolism [Recovered/Resolved]
  - Hepatobiliary scan abnormal [None]
